FAERS Safety Report 14226114 (Version 3)
Quarter: 2017Q4

REPORT INFORMATION
  Report Type: Spontaneous
  Country: JP (occurrence: JP)
  Receive Date: 20171127
  Receipt Date: 20171208
  Transmission Date: 20180321
  Serious: Yes (Death, Other)
  Sender: FDA-Public Use
  Company Number: JP-PFIZER INC-2017482160

PATIENT
  Age: 80 Year
  Sex: Female

DRUGS (19)
  1. ATELEC [Concomitant]
     Active Substance: CILNIDIPINE
     Dosage: 10 MG, DAILY
     Route: 048
     Dates: start: 20171014, end: 20171017
  2. PERDIPINE [Concomitant]
     Active Substance: NICARDIPINE HYDROCHLORIDE
     Dosage: UNK
     Route: 041
     Dates: start: 20171014, end: 20171103
  3. ZOSYN [Suspect]
     Active Substance: PIPERACILLIN SODIUM\TAZOBACTAM SODIUM
     Indication: PNEUMONIA ASPIRATION
     Dosage: 4.5 G, 2X/DAY
     Route: 041
     Dates: start: 20171014, end: 20171031
  4. EDIROL [Concomitant]
     Active Substance: ELDECALCITOL
     Dosage: 0.5 UG, DAILY
     Route: 048
     Dates: start: 20171014, end: 20171017
  5. VIMPAT [Concomitant]
     Active Substance: LACOSAMIDE
     Dosage: 200 MG, DAILY
     Route: 048
     Dates: start: 20171031, end: 20171103
  6. GASMOTIN [Concomitant]
     Active Substance: MOSAPRIDE CITRATE
     Dosage: 45 MG, DAILY
     Route: 048
     Dates: start: 20171014, end: 20171017
  7. SOLITA [Concomitant]
     Dosage: 200 ML, DAILY
     Route: 041
     Dates: start: 20171014, end: 20171103
  8. ISOTONIC SODIUM CHLORIDE SOLUTION [Concomitant]
     Active Substance: SODIUM CHLORIDE
     Dosage: 100 ML, DAILY
     Route: 041
     Dates: start: 20171014, end: 20171030
  9. E KEPPRA [Concomitant]
     Active Substance: LEVETIRACETAM
     Indication: STATUS EPILEPTICUS
     Dosage: 1 G, DAILY
     Route: 048
     Dates: start: 20171008, end: 20171021
  10. DEPAS [Concomitant]
     Active Substance: ETIZOLAM
     Dosage: 0.5 MG, DAILY
     Route: 048
     Dates: start: 20171014, end: 20171017
  11. CARDENALIN [Concomitant]
     Active Substance: DOXAZOSIN MESYLATE
     Dosage: 2 MG, DAILY
     Route: 048
     Dates: start: 20171014, end: 20171017
  12. MIYA-BM [Concomitant]
     Active Substance: CLOSTRIDIUM BUTYRICUM SPORES STRAIN M-55
     Dosage: 3 DF, DAILY
     Route: 048
     Dates: start: 20171014, end: 20171017
  13. ASPARA-CA [Concomitant]
     Active Substance: CALCIUM ASPARTATE
     Dosage: 200 MG, DAILY
     Route: 048
     Dates: start: 20171014, end: 20171017
  14. NATRIX [Concomitant]
     Active Substance: INDAPAMIDE
     Dosage: 2 MG, DAILY
     Route: 048
     Dates: start: 20171014, end: 20171017
  15. MICARDIS [Concomitant]
     Active Substance: TELMISARTAN
     Dosage: 80 MG, DAILY
     Route: 048
     Dates: start: 20171014, end: 20171017
  16. TAKECAB [Concomitant]
     Active Substance: VONOPRAZAN FUMURATE
     Dosage: 20 MG, DAILY
     Route: 048
     Dates: start: 20171014, end: 20171017
  17. SEISHOKU [Concomitant]
     Active Substance: SODIUM CHLORIDE
     Dosage: UNK
     Route: 041
     Dates: start: 20171014, end: 20171031
  18. E KEPPRA [Concomitant]
     Active Substance: LEVETIRACETAM
     Indication: STATUS EPILEPTICUS
     Dosage: 500 MG, DAILY
     Route: 041
     Dates: start: 20171005, end: 20171031
  19. MYSLEE [Concomitant]
     Active Substance: ZOLPIDEM TARTRATE
     Dosage: 5 MG, DAILY
     Route: 048
     Dates: start: 20171014, end: 20171017

REACTIONS (6)
  - Chronic kidney disease [Fatal]
  - White blood cell count decreased [Unknown]
  - Cerebral haemorrhage [Fatal]
  - Platelet count decreased [Unknown]
  - Pancytopenia [Unknown]
  - Cardiac failure [Fatal]

NARRATIVE: CASE EVENT DATE: 20171031
